FAERS Safety Report 7085338-4 (Version None)
Quarter: 2010Q4

REPORT INFORMATION
  Report Type: 
  Country: None (occurrence: None)
  Receive Date: 20101105
  Receipt Date: 20101028
  Transmission Date: 20110411
  Serious: Yes (Other)
  Sender: FDA-Public Use
  Company Number: US-PFIZER INC-2010137755

PATIENT
  Sex: Male
  Weight: 81.633 kg

DRUGS (3)
  1. SERTRALINE HYDROCHLORIDE [Suspect]
     Indication: DEPRESSION
     Dosage: UNK
     Route: 048
  2. KLONOPIN [Concomitant]
     Indication: ANXIETY
     Dosage: 0.5 MG, UNK
     Route: 048
  3. SEROQUEL [Concomitant]
     Indication: SLEEP DISORDER
     Dosage: 50 MG, UNK
     Route: 048

REACTIONS (6)
  - HEART RATE INCREASED [None]
  - HYPERHIDROSIS [None]
  - INSOMNIA [None]
  - POLLAKIURIA [None]
  - TINNITUS [None]
  - VISION BLURRED [None]
